FAERS Safety Report 7545898-3 (Version None)
Quarter: 2011Q2

REPORT INFORMATION
  Report Type: 
  Country: None (occurrence: None)
  Receive Date: 20110613
  Receipt Date: 20110613
  Transmission Date: 20111010
  Serious: Yes (Life-Threatening, Other)
  Sender: FDA-Public Use
  Company Number: None

PATIENT

DRUGS (1)
  1. GLYBURIDE [Suspect]
     Dates: start: 20101029, end: 20101102

REACTIONS (8)
  - INTRA-UTERINE DEATH [None]
  - DRUG EXPOSURE DURING PREGNANCY [None]
  - HYPOGLYCAEMIA [None]
  - DYSPNOEA [None]
  - DELUSION [None]
  - FATIGUE [None]
  - HYPERVENTILATION [None]
  - BLOOD GLUCOSE FLUCTUATION [None]
